FAERS Safety Report 9337051 (Version 1)
Quarter: 2013Q2

REPORT INFORMATION
  Report Type: Spontaneous
  Country: RU (occurrence: RU)
  Receive Date: 20130607
  Receipt Date: 20130607
  Transmission Date: 20140414
  Serious: Yes (Other)
  Sender: FDA-Public Use
  Company Number: RU-PFIZER INC-2013170417

PATIENT
  Age: 75 Year
  Sex: Female

DRUGS (4)
  1. LIPRIMAR [Suspect]
     Indication: DYSLIPIDAEMIA
     Dosage: 20 MG, 1X/DAY
     Route: 048
     Dates: start: 20130425, end: 20130517
  2. NORVASC [Concomitant]
     Dosage: 5 MG, 1X/DAY
     Route: 048
  3. MICARDIS [Concomitant]
     Dosage: UNK
     Route: 048
  4. CARDIOMAGNYL [Concomitant]
     Dosage: UNK
     Route: 048

REACTIONS (3)
  - Rash [Recovered/Resolved]
  - Pruritus [Recovered/Resolved]
  - Skin ulcer [Recovered/Resolved]
